FAERS Safety Report 19832292 (Version 1)
Quarter: 2021Q3

REPORT INFORMATION
  Report Type: Spontaneous
  Country: US (occurrence: US)
  Receive Date: 20210915
  Receipt Date: 20210915
  Transmission Date: 20211014
  Serious: No
  Sender: FDA-Public Use
  Company Number: None

PATIENT
  Age: 21 Year

DRUGS (1)
  1. HUMIRA [Suspect]
     Active Substance: ADALIMUMAB
     Indication: CROHN^S DISEASE
     Dates: start: 20210618

REACTIONS (4)
  - Device leakage [None]
  - Injection site pain [None]
  - Incorrect dose administered [None]
  - Device malfunction [None]

NARRATIVE: CASE EVENT DATE: 20210914
